FAERS Safety Report 5357312-7 (Version None)
Quarter: 2007Q2

REPORT INFORMATION
  Report Type: 
  Country: None (occurrence: None)
  Receive Date: 20070614
  Receipt Date: 20070605
  Transmission Date: 20071010
  Serious: Yes (Death, Life-Threatening)
  Sender: FDA-Public Use
  Company Number: AT-JNJFOC-20070501792

PATIENT
  Age: 45 Year
  Sex: Male

DRUGS (5)
  1. TOPAMAX [Suspect]
     Indication: EPILEPSY
     Route: 048
  2. TEGRETOL [Suspect]
     Indication: EPILEPSY
     Route: 065
  3. LAMICTAL [Concomitant]
     Indication: EPILEPSY
     Route: 065
  4. KLACID [Concomitant]
     Indication: PNEUMONIA PRIMARY ATYPICAL
     Dosage: MEDICATION TO BE CONTINUED UNTIL 14-MAY-2007
     Route: 065
  5. OSPEXIN [Concomitant]
     Indication: PNEUMONIA PRIMARY ATYPICAL
     Dosage: MEDICATION TO BE CONTINUED UNTIL 14-MAY-2007
     Route: 065

REACTIONS (2)
  - HYPOTHERMIA [None]
  - PNEUMONIA PRIMARY ATYPICAL [None]
